FAERS Safety Report 14542165 (Version 1)
Quarter: 2018Q1

REPORT INFORMATION
  Report Type: Spontaneous
  Country: US (occurrence: US)
  Receive Date: 20180216
  Receipt Date: 20180216
  Transmission Date: 20180509
  Serious: Yes (Other)
  Sender: FDA-Public Use
  Company Number: US-OTSUKA-DJ20128624

PATIENT
  Age: 62 Year
  Sex: Female
  Weight: 95.24 kg

DRUGS (3)
  1. ABILIFY [Suspect]
     Active Substance: ARIPIPRAZOLE
     Indication: DEPRESSION
     Dosage: 5 MG, UNK
     Route: 048
  2. PREDNISONE. [Concomitant]
     Active Substance: PREDNISONE
     Indication: PRODUCT USED FOR UNKNOWN INDICATION
     Dosage: UNK
     Route: 065
  3. METFORMIN HCL [Concomitant]
     Active Substance: METFORMIN HYDROCHLORIDE
     Indication: PRODUCT USED FOR UNKNOWN INDICATION
     Dosage: 750 MG, UNK
     Route: 065

REACTIONS (7)
  - Wrong technique in product usage process [Unknown]
  - Diabetes mellitus [Unknown]
  - Tension headache [Unknown]
  - Tremor [Unknown]
  - Drug ineffective [Unknown]
  - Eye disorder [Unknown]
  - Fatigue [Unknown]

NARRATIVE: CASE EVENT DATE: 201105
